FAERS Safety Report 7416206-3 (Version None)
Quarter: 2011Q2

REPORT INFORMATION
  Report Type: 
  Country: None (occurrence: None)
  Receive Date: 20110414
  Receipt Date: 20110401
  Transmission Date: 20111010
  Serious: Yes (Other)
  Sender: FDA-Public Use
  Company Number: CA-JNJFOC-20110402130

PATIENT
  Sex: Male

DRUGS (6)
  1. REMICADE [Suspect]
     Indication: ANKYLOSING SPONDYLITIS
     Route: 042
  2. ASACOL [Concomitant]
     Route: 065
  3. PERCOCET [Concomitant]
     Dosage: 2-10 PRN
     Route: 065
  4. ZOPICLONE [Concomitant]
     Route: 048
  5. RELPAX [Concomitant]
     Dosage: PRN
     Route: 065
  6. SEROQUEL [Concomitant]
     Route: 065

REACTIONS (1)
  - OVERDOSE [None]
